FAERS Safety Report 8495287-2 (Version None)
Quarter: 2012Q3

REPORT INFORMATION
  Report Type: 
  Country: None (occurrence: None)
  Receive Date: 20120709
  Receipt Date: 20120622
  Transmission Date: 20120928
  Serious: No
  Sender: FDA-Public Use
  Company Number: US-ASTRAZENECA-2012SE42306

PATIENT
  Age: 12 Year
  Sex: Male
  Weight: 53.5 kg

DRUGS (3)
  1. SEROQUEL [Suspect]
     Route: 048
     Dates: start: 20120401
  2. ZERTEC [Concomitant]
     Indication: HYPERSENSITIVITY
  3. SEROQUEL [Suspect]
     Indication: BIPOLAR DISORDER
     Route: 048
     Dates: end: 20120401

REACTIONS (3)
  - MUCOSAL DRYNESS [None]
  - DRUG PRESCRIBING ERROR [None]
  - DRY MOUTH [None]
